FAERS Safety Report 7475783-7 (Version None)
Quarter: 2011Q2

REPORT INFORMATION
  Report Type: 
  Country: None (occurrence: None)
  Receive Date: 20110510
  Receipt Date: 20110510
  Transmission Date: 20111010
  Serious: Yes (Hospitalization)
  Sender: FDA-Public Use
  Company Number: None

PATIENT
  Age: 27 Year
  Sex: Female
  Weight: 74.8435 kg

DRUGS (2)
  1. BENZACLIN TOPICAL GEL [Suspect]
     Indication: ACNE
     Dosage: BENZACLIN GEL ONCE A DAY TOP
     Route: 061
     Dates: start: 20060605, end: 20080105
  2. TRETINOIN [Suspect]
     Indication: ACNE
     Dosage: TRETINOIN CREAM ONCE A DAY TOP
     Route: 061
     Dates: start: 20060605, end: 20080105

REACTIONS (1)
  - COLITIS ULCERATIVE [None]
